FAERS Safety Report 8874456 (Version 2)
Quarter: 2012Q4

REPORT INFORMATION
  Report Type: 
  Country: US (occurrence: US)
  Receive Date: 20121031
  Receipt Date: 20121112
  Transmission Date: 20130627
  Serious: Yes (Life-Threatening, Hospitalization, Disabling, Other)
  Sender: FDA-Public Use
  Company Number: US-009507513-1210USA011936

PATIENT
  Age: 50 Year
  Sex: Male
  Weight: 107.94 kg

DRUGS (2)
  1. VYTORIN [Suspect]
     Indication: HYPERCHOLESTEROLAEMIA
     Dosage: 10/20 mg, qd
     Route: 048
     Dates: start: 20120628, end: 20120630
  2. NIASPAN [Concomitant]

REACTIONS (2)
  - Pancreatic abscess [Recovered/Resolved]
  - Pancreatitis acute [Recovered/Resolved]
